FAERS Safety Report 24566673 (Version 1)
Quarter: 2024Q4

REPORT INFORMATION
  Report Type: Spontaneous
  Country: US (occurrence: None)
  Receive Date: 20241030
  Receipt Date: 20241030
  Transmission Date: 20250115
  Serious: Yes (Hospitalization)
  Sender: Public
  Company Number: None

PATIENT
  Sex: Female

DRUGS (2)
  1. CUTAQUIG [Suspect]
     Active Substance: HUMAN IMMUNOGLOBULIN G
     Dosage: FREQUENCY : EVERY OTHER WEEK; ?STRENGTH: 8GM/48ML ?
     Route: 058
     Dates: start: 20241008
  2. CUTAQUIG [Suspect]
     Active Substance: HUMAN IMMUNOGLOBULIN G
     Indication: Immunodeficiency common variable
     Dosage: FREQUENCY : EVERY OTHER WEEK;?STRENGTH: 8GM/48ML
     Route: 058
     Dates: start: 20241008

REACTIONS (3)
  - Pneumonia [None]
  - Fluid retention [None]
  - Full blood count abnormal [None]
